FAERS Safety Report 8507235-7 (Version None)
Quarter: 2012Q3

REPORT INFORMATION
  Report Type: 
  Country: None (occurrence: None)
  Receive Date: 20120712
  Receipt Date: 20120702
  Transmission Date: 20120928
  Serious: Yes (Life-Threatening, Hospitalization, Other)
  Sender: FDA-Public Use
  Company Number: US-ABBOTT-12P-163-0952040-00

PATIENT
  Sex: Female

DRUGS (9)
  1. TOPAMAX [Concomitant]
     Indication: HEADACHE
     Dates: start: 20100727, end: 20110221
  2. ESCITALOPRAM [Concomitant]
     Indication: TEMPOROMANDIBULAR JOINT SYNDROME
  3. HUMIRA [Suspect]
     Indication: JUVENILE ARTHRITIS
     Route: 058
     Dates: start: 20100304
  4. SULFASALAZINE [Concomitant]
     Indication: JUVENILE ARTHRITIS
     Dates: start: 20100727
  5. TOPAMAX [Concomitant]
     Dates: start: 20110221
  6. TRAMADOL HCL [Concomitant]
     Indication: PAIN
     Dates: start: 20100913, end: 20120629
  7. DICLOFENAC [Concomitant]
     Indication: PAIN
     Dates: start: 20100310
  8. SULFASALAZINE [Concomitant]
     Indication: PAIN
  9. DEPO-PROVERA [Concomitant]
     Indication: CONTRACEPTION
     Dosage: 1 INJECTION
     Dates: start: 20111001

REACTIONS (2)
  - SUICIDE ATTEMPT [None]
  - DEPRESSION [None]
